FAERS Safety Report 21298981 (Version 1)
Quarter: 2022Q3

REPORT INFORMATION
  Report Type: Spontaneous
  Country: US (occurrence: US)
  Receive Date: 20220906
  Receipt Date: 20220906
  Transmission Date: 20221026
  Serious: No
  Sender: FDA-Public Use
  Company Number: US-PFIZER INC-PV202200055045

PATIENT
  Age: 60 Year
  Sex: Female

DRUGS (2)
  1. GABAPENTIN [Interacting]
     Active Substance: GABAPENTIN
     Dosage: UNK
  2. TRAMADOL [Interacting]
     Active Substance: TRAMADOL
     Dosage: UNK

REACTIONS (1)
  - Drug interaction [Unknown]
